FAERS Safety Report 14857135 (Version 3)
Quarter: 2018Q2

REPORT INFORMATION
  Report Type: Report from Study
  Country: None (occurrence: CA)
  Receive Date: 20180507
  Receipt Date: 20180614
  Transmission Date: 20180711
  Serious: Yes (Hospitalization)
  Sender: FDA-Public Use
  Company Number: CA-ABBVIE-18S-028-2341265-00

PATIENT
  Age: 30 Year
  Sex: Female
  Weight: 67.65 kg

DRUGS (18)
  1. OXYCODONE WITH ACETAMINOPHEN [Concomitant]
     Indication: PAIN
     Dosage: 5 MG/325 MG WHEN NEEDED. ON AVERAGE 10 A MONTH
     Route: 048
     Dates: start: 201708
  2. ONDANSETRON [Concomitant]
     Active Substance: ONDANSETRON
     Indication: NAUSEA
     Route: 048
     Dates: start: 201710
  3. PANTOPRAZOLE [Concomitant]
     Active Substance: PANTOPRAZOLE
     Indication: DYSPEPSIA
     Dosage: 1 TAB BEFORE BREAKFAST AND SUPPER
     Route: 048
     Dates: start: 20180403
  4. ESTRACE [Concomitant]
     Active Substance: ESTRADIOL
     Indication: PRODUCT USED FOR UNKNOWN INDICATION
     Route: 048
     Dates: start: 20180420
  5. TRYPTOPHAN [Concomitant]
     Active Substance: TRYPTOPHAN
     Indication: DYSPEPSIA
     Route: 048
     Dates: start: 201710
  6. LUPRON DEPOT [Suspect]
     Active Substance: LEUPROLIDE ACETATE
     Indication: PELVIC PAIN
     Route: 030
     Dates: start: 20180419
  7. BACLOFEN. [Concomitant]
     Active Substance: BACLOFEN
     Indication: PRODUCT USED FOR UNKNOWN INDICATION
     Route: 048
  8. ESTRACE [Concomitant]
     Active Substance: ESTRADIOL
     Indication: DYSPEPSIA
     Route: 048
     Dates: start: 20180418
  9. SEROQUEL [Concomitant]
     Active Substance: QUETIAPINE FUMARATE
     Indication: PRODUCT USED FOR UNKNOWN INDICATION
     Route: 065
  10. NABILONE [Concomitant]
     Active Substance: NABILONE
     Indication: PRODUCT USED FOR UNKNOWN INDICATION
     Dosage: 0.5 MG AND 1 MG. TAES 1 CAP AM, 1 CAP AT NOON AND 2 CAPS AT NIGHT
     Route: 065
     Dates: start: 201710
  11. GABAPENTIN. [Concomitant]
     Active Substance: GABAPENTIN
     Indication: PRODUCT USED FOR UNKNOWN INDICATION
     Route: 048
  12. ZOPICLONE [Concomitant]
     Active Substance: ZOPICLONE
     Indication: PAIN
     Dosage: ONCE A DAY AT NIGHT
     Route: 048
  13. QUETIAPINE. [Concomitant]
     Active Substance: QUETIAPINE
     Indication: PRODUCT USED FOR UNKNOWN INDICATION
     Route: 048
  14. LUPRON DEPOT [Suspect]
     Active Substance: LEUPROLIDE ACETATE
     Indication: VAGINAL HAEMORRHAGE
  15. INTRAUTERINE DEVICE [Concomitant]
     Active Substance: INTRAUTERINE DEVICE
     Indication: PRODUCT USED FOR UNKNOWN INDICATION
     Route: 065
  16. ONDANSETRON [Concomitant]
     Active Substance: ONDANSETRON
     Indication: PAIN
  17. RABEPRAZOLE [Concomitant]
     Active Substance: RABEPRAZOLE
     Indication: PRODUCT USED FOR UNKNOWN INDICATION
     Route: 065
  18. TRAMACET [Concomitant]
     Active Substance: ACETAMINOPHEN\TRAMADOL
     Indication: DYSPEPSIA
     Dosage: 1 TAB PRN. TAKES 4 TABS A WEEK
     Route: 048

REACTIONS (18)
  - Gait disturbance [Recovered/Resolved]
  - Diplopia [Recovered/Resolved]
  - Fatigue [Not Recovered/Not Resolved]
  - Dysarthria [Recovered/Resolved]
  - Hypothalamo-pituitary disorder [Recovered/Resolved]
  - Gait disturbance [Unknown]
  - Headache [Recovered/Resolved]
  - Nausea [Not Recovered/Not Resolved]
  - Confusional state [Recovered/Resolved]
  - Nausea [Recovered/Resolved]
  - Visual impairment [Recovered/Resolved]
  - Limb discomfort [Unknown]
  - Feeling drunk [Unknown]
  - Hallucination [Recovered/Resolved]
  - Confusional state [Recovered/Resolved]
  - Balance disorder [Unknown]
  - Headache [Not Recovered/Not Resolved]
  - Lymphocyte count increased [Unknown]

NARRATIVE: CASE EVENT DATE: 201804
